FAERS Safety Report 17307952 (Version 2)
Quarter: 2024Q2

REPORT INFORMATION
  Report Type: Spontaneous
  Country: NL (occurrence: NL)
  Receive Date: 20200123
  Receipt Date: 20240621
  Transmission Date: 20240716
  Serious: Yes (Death, Life-Threatening, Hospitalization, Other)
  Sender: FDA-Public Use
  Company Number: NL-SA-2016SA083799

PATIENT
  Age: 48 Year
  Sex: Male

DRUGS (11)
  1. FLUCONAZOLE [Suspect]
     Active Substance: FLUCONAZOLE
     Indication: Prophylaxis
     Dosage: 100 MG, QD
     Route: 042
  2. PIPERACILLIN SODIUM\TAZOBACTAM SODIUM [Suspect]
     Active Substance: PIPERACILLIN SODIUM\TAZOBACTAM SODIUM
     Indication: Spontaneous bacterial peritonitis
     Dosage: 4500 MG,TID
     Route: 042
  3. PIPERACILLIN SODIUM\TAZOBACTAM SODIUM [Suspect]
     Active Substance: PIPERACILLIN SODIUM\TAZOBACTAM SODIUM
     Indication: Prophylaxis
     Dosage: 4500 MG,TID
     Route: 042
  4. HYDROCORTISONE [Suspect]
     Active Substance: HYDROCORTISONE\HYDROCORTISONE ACETATE
     Indication: Immunosuppressant drug therapy
     Dosage: 4 MG,QH
     Route: 041
  5. CEFTRIAXONE [Suspect]
     Active Substance: CEFTRIAXONE\CEFTRIAXONE SODIUM
     Indication: Escherichia peritonitis
     Dosage: 2000 MG,QD
     Route: 042
  6. MEROPENEM [Suspect]
     Active Substance: MEROPENEM
     Indication: Peritonitis bacterial
     Dosage: 1000 MG,BID
     Route: 042
  7. AMPHOTERICIN B [Suspect]
     Active Substance: AMPHOTERICIN B
     Indication: Infection prophylaxis
     Dosage: 0.3 MG/KG, QD
     Route: 042
  8. AMPHOTERICIN B [Suspect]
     Active Substance: AMPHOTERICIN B
     Indication: Prophylaxis
     Dosage: SELECTIVE DECONTAMINATION OF THE DIGESTIVE TRACT (SDD) REGIMEN ON THE INTENSIVE CARE UNIT (ICU) CONS
  9. BASILIXIMAB [Suspect]
     Active Substance: BASILIXIMAB
     Indication: Immunosuppressant drug therapy
     Dosage: 20 MG, QD, ON DAY 0 AND DAY 4 AFTER TRANSPLANTATION
     Route: 041
  10. POLYMYXIN B [Suspect]
     Active Substance: POLYMYXIN B
     Indication: Infection prophylaxis
     Dosage: Q6H, SELECTIVE DECONTAMINATION OF THE DIGESTIVE TRACT (SDD) REGIMEN ON THE INTENSIVE CARE UNIT (ICU)
  11. TOBRAMYCIN [Suspect]
     Active Substance: TOBRAMYCIN\TOBRAMYCIN SULFATE
     Indication: Infection prophylaxis
     Dosage: Q6H, SELECTIVE DECONTAMINATION OF THE DIGESTIVE TRACT (SDD) REGIMEN ON THE INTENSIVE CARE UNIT (ICU)

REACTIONS (7)
  - Trichosporon infection [Fatal]
  - Drug ineffective [Fatal]
  - Abdominal compartment syndrome [Fatal]
  - Cholangitis infective [Fatal]
  - Pleural effusion [Fatal]
  - Multiple organ dysfunction syndrome [Fatal]
  - Pathogen resistance [Fatal]
